FAERS Safety Report 24014203 (Version 5)
Quarter: 2025Q2

REPORT INFORMATION
  Report Type: Report from Study
  Country: CN (occurrence: CN)
  Receive Date: 20240626
  Receipt Date: 20250602
  Transmission Date: 20250717
  Serious: Yes (Life-Threatening)
  Sender: ROCHE
  Company Number: CN-ROCHE-3574910

PATIENT
  Age: 75 Year
  Sex: Female
  Weight: 46.2 kg

DRUGS (49)
  1. POLATUZUMAB VEDOTIN [Suspect]
     Active Substance: POLATUZUMAB VEDOTIN
     Indication: Diffuse large B-cell lymphoma
     Route: 042
     Dates: start: 20230730, end: 20230730
  2. POLATUZUMAB VEDOTIN [Suspect]
     Active Substance: POLATUZUMAB VEDOTIN
     Route: 042
     Dates: start: 20230827, end: 20230827
  3. ZANUBRUTINIB [Suspect]
     Active Substance: ZANUBRUTINIB
     Indication: Diffuse large B-cell lymphoma
     Route: 048
     Dates: start: 20230729, end: 20230826
  4. ZANUBRUTINIB [Suspect]
     Active Substance: ZANUBRUTINIB
     Route: 048
     Dates: start: 20230827, end: 20230926
  5. RITUXIMAB [Suspect]
     Active Substance: RITUXIMAB
     Indication: Diffuse large B-cell lymphoma
     Route: 042
     Dates: start: 20230729, end: 20230729
  6. Potassium chloride sustained-release tablets [Concomitant]
     Route: 048
     Dates: start: 20230727, end: 20230731
  7. Potassium chloride sustained-release tablets [Concomitant]
     Route: 048
     Dates: start: 20240306, end: 20240306
  8. Potassium chloride sustained-release tablets [Concomitant]
     Route: 048
     Dates: start: 20240307, end: 20240307
  9. Latamoxef sodium for injection [Concomitant]
     Route: 042
     Dates: start: 20230728, end: 20230731
  10. METHYLPREDNISOLONE SODIUM SUCCINATE [Concomitant]
     Active Substance: METHYLPREDNISOLONE SODIUM SUCCINATE
     Route: 042
     Dates: start: 20230728, end: 20230730
  11. METHYLPREDNISOLONE SODIUM SUCCINATE [Concomitant]
     Active Substance: METHYLPREDNISOLONE SODIUM SUCCINATE
     Route: 042
     Dates: start: 20230927, end: 20230927
  12. METHYLPREDNISOLONE SODIUM SUCCINATE [Concomitant]
     Active Substance: METHYLPREDNISOLONE SODIUM SUCCINATE
     Route: 042
     Dates: start: 20240224, end: 20240224
  13. Omeprazole enteric-coated capsules [Concomitant]
     Route: 048
     Dates: start: 20230728, end: 20230730
  14. Omeprazole enteric-coated capsules [Concomitant]
     Route: 048
     Dates: start: 20230927, end: 20230927
  15. Omeprazole enteric-coated capsules [Concomitant]
     Route: 048
     Dates: start: 20240224, end: 20240307
  16. LEUCOGEN [Concomitant]
     Active Substance: LEUCOGEN
     Indication: White blood cell count increased
     Route: 048
     Dates: start: 20230728, end: 20230814
  17. LEUCOGEN [Concomitant]
     Active Substance: LEUCOGEN
     Indication: Platelet count increased
  18. Cefaclor sustained-release tablets (II) [Concomitant]
     Route: 048
     Dates: start: 20230728, end: 20230811
  19. ACYCLOVIR SODIUM [Concomitant]
     Active Substance: ACYCLOVIR SODIUM
     Route: 048
     Dates: start: 20230728, end: 20230821
  20. Promethazine needle [Concomitant]
     Route: 030
     Dates: start: 20230729, end: 20230730
  21. Promethazine needle [Concomitant]
     Route: 030
     Dates: start: 20230927, end: 20230927
  22. Promethazine needle [Concomitant]
     Route: 030
     Dates: start: 20240229, end: 20240229
  23. Promethazine needle [Concomitant]
     Route: 030
     Dates: start: 20240307, end: 20240307
  24. Promethazine needle [Concomitant]
     Route: 030
     Dates: start: 20230729, end: 20230731
  25. Compound acetaminophen Tablets (II) [Concomitant]
     Route: 048
     Dates: start: 20230729, end: 20230731
  26. Compound acetaminophen Tablets (II) [Concomitant]
     Route: 048
     Dates: start: 20230927, end: 20230927
  27. Compound acetaminophen Tablets (II) [Concomitant]
     Dosage: 1 TABLET
     Route: 048
     Dates: start: 20240229, end: 20240229
  28. Compound acetaminophen Tablets (II) [Concomitant]
     Dosage: 1 TABLET
     Route: 048
     Dates: start: 20240307, end: 20240307
  29. Sodium bicarbonate injection 5% [Concomitant]
     Route: 042
     Dates: start: 20230729, end: 20230731
  30. SODIUM CHLORIDE [Concomitant]
     Active Substance: SODIUM CHLORIDE
     Route: 042
     Dates: start: 20230727, end: 20230727
  31. LEVOFLOXACIN [Concomitant]
     Active Substance: LEVOFLOXACIN
     Route: 048
     Dates: start: 20240224, end: 20240227
  32. Torasemide tablets [Concomitant]
     Route: 048
     Dates: start: 20240226, end: 20240226
  33. Torasemide tablets [Concomitant]
     Route: 048
     Dates: start: 20240227, end: 20240227
  34. Torasemide tablets [Concomitant]
     Route: 048
     Dates: start: 20240301, end: 20240301
  35. CEFTAZIDIME [Concomitant]
     Active Substance: CEFTAZIDIME
     Route: 042
     Dates: start: 20240227, end: 20240227
  36. CEFTAZIDIME [Concomitant]
     Active Substance: CEFTAZIDIME
     Route: 042
     Dates: start: 20240228, end: 20240304
  37. CEFTAZIDIME [Concomitant]
     Active Substance: CEFTAZIDIME
     Route: 042
     Dates: start: 20240308, end: 20240315
  38. LIDOCAINE HYDROCHLORIDE [Concomitant]
     Active Substance: LIDOCAINE HYDROCHLORIDE
     Dates: start: 20230727, end: 20230727
  39. LIDOCAINE HYDROCHLORIDE [Concomitant]
     Active Substance: LIDOCAINE HYDROCHLORIDE
     Route: 058
     Dates: start: 20240228, end: 20240228
  40. MONTELUKAST SODIUM [Concomitant]
     Active Substance: MONTELUKAST SODIUM
     Route: 048
     Dates: start: 20240229, end: 20240229
  41. TORSEMIDE [Concomitant]
     Active Substance: TORSEMIDE
     Route: 042
     Dates: start: 20240302, end: 20240308
  42. Ambroxol hydrochloride capsules [Concomitant]
     Route: 048
     Dates: start: 20240304, end: 20240304
  43. Ambroxol hydrochloride capsules [Concomitant]
     Route: 048
     Dates: start: 20240305, end: 20240315
  44. MEROPENEM [Concomitant]
     Active Substance: MEROPENEM
     Route: 042
     Dates: start: 20240304, end: 20240304
  45. MEROPENEM [Concomitant]
     Active Substance: MEROPENEM
     Route: 042
     Dates: start: 20240305, end: 20240307
  46. rivaroxaban tablet [Concomitant]
     Route: 048
     Dates: start: 202304, end: 20230915
  47. rivaroxaban tablet [Concomitant]
     Route: 048
     Dates: start: 20240225
  48. DEXAMETHASONE SODIUM PHOSPHATE [Concomitant]
     Active Substance: DEXAMETHASONE SODIUM PHOSPHATE
     Route: 042
     Dates: start: 20240307, end: 20240307
  49. SULFAMETHOXAZOLE [Concomitant]
     Active Substance: SULFAMETHOXAZOLE
     Indication: Infection prophylaxis
     Dosage: 1 TABLET
     Route: 048
     Dates: start: 20230731

REACTIONS (4)
  - Aspartate aminotransferase increased [Recovered/Resolved]
  - Hypocalcaemia [Recovered/Resolved]
  - Platelet count decreased [Recovered/Resolved]
  - Myelosuppression [Recovered/Resolved]

NARRATIVE: CASE EVENT DATE: 20230826
